FAERS Safety Report 9795708 (Version 1)
Quarter: 2014Q1

REPORT INFORMATION
  Report Type: Spontaneous
  Country: US (occurrence: US)
  Receive Date: 20140103
  Receipt Date: 20140103
  Transmission Date: 20141002
  Serious: No
  Sender: FDA-Public Use
  Company Number: US-009507513-1401USA000183

PATIENT
  Age: 23 Year
  Sex: Female

DRUGS (1)
  1. IMPLANON [Suspect]
     Indication: CONTRACEPTION
     Dosage: UNK
     Route: 059
     Dates: start: 20101230

REACTIONS (5)
  - Muscle spasms [Unknown]
  - Menorrhagia [Unknown]
  - Menorrhagia [Unknown]
  - Menstrual disorder [Unknown]
  - Incorrect drug administration duration [Unknown]
